FAERS Safety Report 15392791 (Version 1)
Quarter: 2018Q3

REPORT INFORMATION
  Report Type: Report from Study
  Country: None (occurrence: US)
  Receive Date: 20180917
  Receipt Date: 20180917
  Transmission Date: 20181010
  Serious: Yes (Other)
  Sender: FDA-Public Use
  Company Number: US-ABBVIE-18K-163-2475646-00

PATIENT
  Age: 48 Year
  Sex: Male

DRUGS (1)
  1. HUMIRA [Suspect]
     Active Substance: ADALIMUMAB
     Indication: CROHN^S DISEASE
     Route: 058
     Dates: start: 2010, end: 2016

REACTIONS (4)
  - Impaired healing [Unknown]
  - Colectomy [Unknown]
  - Fistula [Not Recovered/Not Resolved]
  - Post procedural sepsis [Not Recovered/Not Resolved]

NARRATIVE: CASE EVENT DATE: 2016
